FAERS Safety Report 4825898-4 (Version None)
Quarter: 2005Q4

REPORT INFORMATION
  Report Type: 
  Country: None (occurrence: None)
  Receive Date: 20051111
  Receipt Date: 20051031
  Transmission Date: 20060501
  Serious: Yes (Life-Threatening, Hospitalization, Disabling, Other)
  Sender: FDA-Public Use
  Company Number: NSADSS2002030256

PATIENT
  Sex: Female
  Weight: 50.5 kg

DRUGS (4)
  1. PROPULSID [Suspect]
     Route: 048
     Dates: start: 19970421
  2. PROPULSID [Suspect]
     Indication: DRUG USE FOR UNKNOWN INDICATION
     Route: 048
     Dates: start: 19970421
  3. PRILOSEC [Concomitant]
  4. ZANTAC [Concomitant]

REACTIONS (15)
  - ANOXIC ENCEPHALOPATHY [None]
  - AORTIC VALVE CALCIFICATION [None]
  - CARDIAC ARREST [None]
  - CEREBRAL INFARCTION [None]
  - CHEST PAIN [None]
  - DEPRESSION [None]
  - ELECTROCARDIOGRAM QT PROLONGED [None]
  - MEMORY IMPAIRMENT [None]
  - MITRAL VALVE CALCIFICATION [None]
  - MYOCARDIAL INFARCTION [None]
  - SYNCOPE [None]
  - TRICUSPID VALVE INCOMPETENCE [None]
  - VENTRICULAR FIBRILLATION [None]
  - VENTRICULAR HYPERTROPHY [None]
  - VERTIGO [None]
